FAERS Safety Report 18271813 (Version 1)
Quarter: 2020Q3

REPORT INFORMATION
  Report Type: Spontaneous
  Country: US (occurrence: US)
  Receive Date: 20200915
  Receipt Date: 20200915
  Transmission Date: 20201103
  Serious: Yes (Hospitalization)
  Sender: FDA-Public Use
  Company Number: None

PATIENT
  Sex: Male

DRUGS (7)
  1. DOXYCYCLINE MONOHYDRATE [Concomitant]
     Active Substance: DOXYCYCLINE
  2. MYCOPHENOLIC [Concomitant]
     Active Substance: MYCOPHENOLIC ACID
  3. VALGANCYCLOVIR [Concomitant]
     Active Substance: VALGANCICLOVIR
  4. DAPSONE. [Concomitant]
     Active Substance: DAPSONE
  5. ENVARSUS XR [Suspect]
     Active Substance: TACROLIMUS
     Indication: PRODUCT USED FOR UNKNOWN INDICATION
     Route: 048
     Dates: start: 20200710
  6. SULFAMETH, TRIMETH [Concomitant]
  7. CEFUROXIME. [Concomitant]
     Active Substance: CEFUROXIME

REACTIONS (4)
  - Renal transplant [None]
  - Pneumonia [None]
  - Pyrexia [None]
  - Cough [None]
